FAERS Safety Report 8249113-7 (Version None)
Quarter: 2012Q2

REPORT INFORMATION
  Report Type: 
  Country: None (occurrence: None)
  Receive Date: 20120402
  Receipt Date: 20120330
  Transmission Date: 20120825
  Serious: No
  Sender: FDA-Public Use
  Company Number: US-PFIZER INC-2012081789

PATIENT
  Sex: Female
  Weight: 68.027 kg

DRUGS (5)
  1. CHANTIX [Suspect]
     Dosage: 0.5 MG, 2X/DAY
     Route: 048
     Dates: start: 20120301, end: 20120301
  2. CHANTIX [Suspect]
     Dosage: UNK
     Route: 048
     Dates: start: 20120301
  3. LABETALOL [Concomitant]
     Indication: HYPERTENSION
     Dosage: 200 MG, 2X/DAY
  4. TRAZODONE [Concomitant]
     Indication: SLEEP DISORDER
     Dosage: UNK, ONE AND HALF TABLET DAILY
  5. CHANTIX [Suspect]
     Indication: SMOKING CESSATION THERAPY
     Dosage: 0.5 MG, DAILY
     Route: 048
     Dates: start: 20120322, end: 20120301

REACTIONS (5)
  - CONSTIPATION [None]
  - DISCOMFORT [None]
  - THERAPEUTIC RESPONSE UNEXPECTED [None]
  - HEADACHE [None]
  - ABDOMINAL DISCOMFORT [None]
